FAERS Safety Report 16963226 (Version 2)
Quarter: 2019Q4

REPORT INFORMATION
  Report Type: Report from Study
  Country: KR (occurrence: KR)
  Receive Date: 20191025
  Receipt Date: 20191223
  Transmission Date: 20200122
  Serious: Yes (Hospitalization)
  Sender: FDA-Public Use
  Company Number: PHHO2019KR008434

PATIENT
  Age: 59 Year
  Sex: Female
  Weight: 46 kg

DRUGS (8)
  1. ALPELISIB [Suspect]
     Active Substance: ALPELISIB
     Indication: BREAST CANCER
     Dosage: 200 MG, QD
     Route: 048
     Dates: start: 20160609, end: 20160613
  2. LEE011 [Suspect]
     Active Substance: RIBOCICLIB
     Indication: BREAST CANCER
     Dosage: 300 MG, Q3W
     Route: 048
     Dates: start: 20160609, end: 20160629
  3. ALPELISIB [Suspect]
     Active Substance: ALPELISIB
     Dosage: 100 MG, QD
     Route: 048
     Dates: start: 20190918
  4. ALPELISIB [Suspect]
     Active Substance: ALPELISIB
     Dosage: 150 MG, QD
     Route: 048
     Dates: start: 20160627, end: 20160701
  5. LETROZOLE. [Suspect]
     Active Substance: LETROZOLE
     Indication: BREAST CANCER
     Dosage: 2.5 MG, QD
     Route: 048
     Dates: start: 20160609
  6. ALPELISIB [Suspect]
     Active Substance: ALPELISIB
     Dosage: 150 MG, QD
     Route: 048
     Dates: start: 20160704, end: 20160718
  7. ALPELISIB [Suspect]
     Active Substance: ALPELISIB
     Dosage: 100 MG, QD
     Route: 048
     Dates: start: 20160829, end: 20160925
  8. LEE011 [Suspect]
     Active Substance: RIBOCICLIB
     Dosage: 300 MG, Q3W
     Route: 048
     Dates: start: 20160704, end: 20160718

REACTIONS (1)
  - Cerebral haemangioma [Recovered/Resolved]

NARRATIVE: CASE EVENT DATE: 20190816
